FAERS Safety Report 12927479 (Version 1)
Quarter: 2016Q4

REPORT INFORMATION
  Report Type: Spontaneous
  Country: US (occurrence: US)
  Receive Date: 20161109
  Receipt Date: 20161109
  Transmission Date: 20170207
  Serious: No
  Sender: FDA-Public Use
  Company Number: None

PATIENT
  Age: 48 Year
  Sex: Female
  Weight: 51.3 kg

DRUGS (5)
  1. PAZEO [Suspect]
     Active Substance: OLOPATADINE HYDROCHLORIDE
     Indication: PROPHYLAXIS
     Route: 047
     Dates: start: 20160924, end: 20160926
  2. PROBIOTICS [Concomitant]
     Active Substance: PROBIOTICS NOS
  3. FISH OIL SUPPLEMENTS [Concomitant]
     Active Substance: FISH OIL
  4. COLLAGEN SUPPLEMENTS [Concomitant]
  5. PAZEO [Suspect]
     Active Substance: OLOPATADINE HYDROCHLORIDE
     Indication: CONJUNCTIVITIS ALLERGIC
     Route: 047
     Dates: start: 20160924, end: 20160926

REACTIONS (2)
  - Vision blurred [None]
  - Dry eye [None]

NARRATIVE: CASE EVENT DATE: 20160924
